FAERS Safety Report 21741893 (Version 1)
Quarter: 2022Q4

REPORT INFORMATION
  Report Type: Spontaneous
  Country: US (occurrence: US)
  Receive Date: 20221216
  Receipt Date: 20221216
  Transmission Date: 20230113
  Serious: Yes (Other)
  Sender: FDA-Public Use
  Company Number: US-002147023-NVSC2022US290447

PATIENT
  Age: 19 Year
  Sex: Female

DRUGS (1)
  1. AMANTADINE [Suspect]
     Active Substance: AMANTADINE
     Indication: Psychotic disorder
     Dosage: UNK
     Route: 065

REACTIONS (3)
  - Hallucination [Unknown]
  - Condition aggravated [Unknown]
  - Product use in unapproved indication [Unknown]
